FAERS Safety Report 23528213 (Version 1)
Quarter: 2024Q1

REPORT INFORMATION
  Report Type: Spontaneous
  Country: FR (occurrence: None)
  Receive Date: 20240215
  Receipt Date: 20240215
  Transmission Date: 20240410
  Serious: Yes (Life-Threatening, Hospitalization, Other)
  Sender: FDA-Public Use
  Company Number: 2024A038325

PATIENT
  Age: 78 Year
  Sex: Male

DRUGS (1)
  1. DURVALUMAB [Suspect]
     Active Substance: DURVALUMAB
     Indication: Lung carcinoma cell type unspecified stage III
     Dosage: UNKNOWN
     Route: 042

REACTIONS (2)
  - Lymphangitis [Recovering/Resolving]
  - Interstitial lung disease [Recovering/Resolving]
